FAERS Safety Report 24994964 (Version 1)
Quarter: 2025Q1

REPORT INFORMATION
  Report Type: Spontaneous
  Country: US (occurrence: None)
  Receive Date: 20250221
  Receipt Date: 20250221
  Transmission Date: 20250409
  Serious: Yes (Death, Hospitalization)
  Sender: FDA-CTU
  Company Number: None

PATIENT
  Age: 68 Year
  Sex: Female
  Weight: 43.2 kg

DRUGS (2)
  1. XELODA [Suspect]
     Active Substance: CAPECITABINE
  2. ELOXATIN [Suspect]
     Active Substance: OXALIPLATIN

REACTIONS (13)
  - Diarrhoea [None]
  - Asthenia [None]
  - Malaise [None]
  - Dizziness [None]
  - Somnolence [None]
  - Metabolic acidosis [None]
  - Hypokalaemia [None]
  - Unresponsive to stimuli [None]
  - Hypotension [None]
  - Generalised tonic-clonic seizure [None]
  - Shock [None]
  - Pulseless electrical activity [None]
  - Multiple organ dysfunction syndrome [None]

NARRATIVE: CASE EVENT DATE: 20241123
